FAERS Safety Report 5646802-5 (Version None)
Quarter: 2008Q1

REPORT INFORMATION
  Report Type: 
  Country: None (occurrence: None)
  Receive Date: 20080303
  Receipt Date: 20080225
  Transmission Date: 20080703
  Serious: Yes (Life-Threatening, Hospitalization)
  Sender: FDA-Public Use
  Company Number: GB-BRISTOL-MYERS SQUIBB COMPANY-14025464

PATIENT
  Age: 60 Year
  Sex: Male

DRUGS (3)
  1. CETUXIMAB [Suspect]
     Indication: COLORECTAL CANCER
     Route: 042
     Dates: start: 20070613, end: 20071003
  2. OXALIPLATIN [Suspect]
     Indication: COLORECTAL CANCER METASTATIC
     Dosage: DAY 1 OF CYCLE
     Route: 042
     Dates: start: 20070613, end: 20071003
  3. CAPECITABINE [Suspect]
     Indication: COLORECTAL CANCER METASTATIC
     Dosage: 1-14 REPEATED 3 WEEKS
     Route: 048
     Dates: start: 20070613, end: 20071023

REACTIONS (5)
  - APHASIA [None]
  - CEREBROVASCULAR ACCIDENT [None]
  - DIZZINESS [None]
  - HEMIPLEGIA [None]
  - LOSS OF CONSCIOUSNESS [None]
